FAERS Safety Report 9172782 (Version 3)
Quarter: 2013Q2

REPORT INFORMATION
  Report Type: Spontaneous
  Country: US (occurrence: US)
  Receive Date: 20130319
  Receipt Date: 20130516
  Transmission Date: 20140414
  Serious: No
  Sender: FDA-Public Use
  Company Number: US-009507513-1303USA007639

PATIENT
  Age: 72 Year
  Sex: Female

DRUGS (5)
  1. TICE BCG LIVE [Suspect]
     Indication: BLADDER CANCER
  2. BCG VACCINE USP [Suspect]
     Indication: BLADDER CANCER
     Route: 043
     Dates: start: 20121129, end: 20121129
  3. BCG VACCINE USP [Suspect]
     Route: 043
     Dates: start: 20121206, end: 20121206
  4. BCG VACCINE USP [Suspect]
     Route: 043
     Dates: start: 20121213, end: 20121213
  5. BCG VACCINE USP [Suspect]
     Route: 043
     Dates: start: 20121220, end: 20121220

REACTIONS (13)
  - Incorrect route of drug administration [Unknown]
  - Incorrect route of drug administration [Unknown]
  - Incorrect route of drug administration [Unknown]
  - Incorrect route of drug administration [Unknown]
  - Wrong drug administered [Unknown]
  - Drug name confusion [Unknown]
  - No adverse event [Unknown]
  - Wrong drug administered [Unknown]
  - Wrong drug administered [Unknown]
  - Wrong drug administered [Unknown]
  - Drug name confusion [Unknown]
  - Drug name confusion [Unknown]
  - Drug name confusion [Unknown]
